FAERS Safety Report 4583492-7 (Version None)
Quarter: 2005Q1

REPORT INFORMATION
  Report Type: 
  Country: None (occurrence: None)
  Receive Date: 20050211
  Receipt Date: 20050131
  Transmission Date: 20050727
  Serious: Yes (Hospitalization)
  Sender: FDA-Public Use
  Company Number: 2005023453

PATIENT
  Age: 69 Year
  Sex: Male

DRUGS (10)
  1. ZOXAN LP (DOXAZOSIN) [Suspect]
     Indication: PROSTATITIS
     Dosage: 1 DF (EVERY DAY), ORAL
     Route: 048
     Dates: start: 20040203, end: 20040213
  2. BACTRIM [Suspect]
     Indication: PROSTATITIS
     Dosage: 2 DF (EVERY DAY), ORAL
     Route: 048
     Dates: start: 20040203, end: 20040213
  3. OMEPRAZOLE [Concomitant]
  4. FINASTERIDE [Concomitant]
  5. RHINOFLUIMUCIL (ACETYLCYSTEINE, BENZALKONIUM CHLORIDE, TUAMINOHEPTANE) [Concomitant]
  6. LYSOZYME (LYSOZYME) [Concomitant]
  7. URAPIDIL (URAPIDIL) [Concomitant]
  8. BISOPROLOL FUMARATE [Concomitant]
  9. SPIRONOLACTONE [Concomitant]
  10. BACITRACIN (BACITRACIN) [Concomitant]

REACTIONS (3)
  - CONJUNCTIVITIS [None]
  - DYSPHAGIA [None]
  - STEVENS-JOHNSON SYNDROME [None]
